FAERS Safety Report 4787860-X (Version None)
Quarter: 2005Q3

REPORT INFORMATION
  Report Type: 
  Country: None (occurrence: None)
  Receive Date: 20050926
  Receipt Date: 20050721
  Transmission Date: 20060218
  Serious: Yes (Hospitalization)
  Sender: FDA-Public Use
  Company Number: 216290

PATIENT
  Age: 87 Year
  Sex: Male

DRUGS (6)
  1. AVASTIN [Suspect]
     Indication: RENAL CELL CARCINOMA STAGE UNSPECIFIED
     Dates: start: 20050209, end: 20050605
  2. TARCEVA [Suspect]
     Indication: RENAL CELL CARCINOMA STAGE UNSPECIFIED
     Dosage: 150 MG, QD, ORAL
     Route: 048
     Dates: start: 20050209, end: 20050605
  3. NORVASC (AMLODIIPNE BESYLATE) [Concomitant]
  4. FLOMAX [Concomitant]
  5. MARINOL [Concomitant]
  6. PAIN MEDICATION (ANALGESIC NOS) [Concomitant]

REACTIONS (1)
  - HAEMOPTYSIS [None]
